FAERS Safety Report 9334730 (Version 1)
Quarter: 2013Q2

REPORT INFORMATION
  Report Type: Spontaneous
  Country: US (occurrence: US)
  Receive Date: 20130606
  Receipt Date: 20130606
  Transmission Date: 20140414
  Serious: No
  Sender: FDA-Public Use
  Company Number: US-AMGEN-USASP2013006530

PATIENT
  Age: 73 Year
  Sex: Female

DRUGS (6)
  1. PROLIA [Suspect]
     Indication: OSTEOPOROSIS POSTMENOPAUSAL
     Dosage: UNK
     Dates: start: 20121221
  2. SYNTHROID [Concomitant]
     Dosage: 112 MG, QD
  3. ATORVASTATIN [Concomitant]
     Dosage: 20 MG, QD
  4. LISINOPRIL [Concomitant]
     Dosage: 10 MG, QD
  5. GEMFIBROZIL [Concomitant]
     Dosage: 600 MG, BID
  6. CALCIUM WITH VITAMIN D             /00944201/ [Concomitant]
     Dosage: 600 MG PLUS 400 IU

REACTIONS (5)
  - Pain [Unknown]
  - Arthralgia [Unknown]
  - Back pain [Recovered/Resolved]
  - Musculoskeletal pain [Recovered/Resolved]
  - Pain in extremity [Recovered/Resolved]
